FAERS Safety Report 10448596 (Version 2)
Quarter: 2014Q3

REPORT INFORMATION
  Report Type: Report from Study
  Country: ES (occurrence: ES)
  Receive Date: 20140912
  Receipt Date: 20140912
  Transmission Date: 20150326
  Serious: Yes (Hospitalization, Other)
  Sender: FDA-Public Use
  Company Number: ES-ROCHE-1449924

PATIENT

DRUGS (3)
  1. PACLITAXEL. [Suspect]
     Active Substance: PACLITAXEL
     Indication: NON-SMALL CELL LUNG CANCER
     Route: 065
  2. BEVACIZUMAB [Suspect]
     Active Substance: BEVACIZUMAB
     Indication: NON-SMALL CELL LUNG CANCER
     Route: 065
  3. CARBOPLATIN. [Suspect]
     Active Substance: CARBOPLATIN
     Indication: NON-SMALL CELL LUNG CANCER
     Dosage: AUC=6
     Route: 065

REACTIONS (14)
  - Dysphagia [Unknown]
  - Neutropenia [Unknown]
  - Mucosal inflammation [Unknown]
  - Vomiting [Unknown]
  - Anaemia [Unknown]
  - Hypertension [Unknown]
  - Epistaxis [Unknown]
  - Neuropathy peripheral [Unknown]
  - Embolism venous [Unknown]
  - Thrombocytopenia [Unknown]
  - Diarrhoea [Unknown]
  - Nephropathy toxic [Unknown]
  - Pyrexia [Unknown]
  - Fatigue [Unknown]
